FAERS Safety Report 10349142 (Version 2)
Quarter: 2014Q3

REPORT INFORMATION
  Report Type: Spontaneous
  Country: FR (occurrence: FR)
  Receive Date: 20140730
  Receipt Date: 20140807
  Transmission Date: 20150326
  Serious: Yes (Disabling, Congenital Anomaly, Other)
  Sender: FDA-Public Use
  Company Number: FR-ROCHE-1441852

PATIENT
  Age: 30 Year
  Sex: Male

DRUGS (1)
  1. ZELBORAF [Suspect]
     Active Substance: VEMURAFENIB
     Indication: MALIGNANT MELANOMA
     Dosage: IN THE MORNING AND IN THE EVENING
     Route: 065
     Dates: start: 20140628, end: 20140729

REACTIONS (4)
  - Pruritus [Recovered/Resolved]
  - Skin hypertrophy [Recovering/Resolving]
  - Burning sensation [Unknown]
  - Sunburn [Not Recovered/Not Resolved]

NARRATIVE: CASE EVENT DATE: 20140628
